FAERS Safety Report 6379287-4 (Version None)
Quarter: 2009Q3

REPORT INFORMATION
  Report Type: 
  Country: None (occurrence: None)
  Receive Date: 20090923
  Receipt Date: 20090923
  Transmission Date: 20100115
  Serious: Yes (Hospitalization)
  Sender: FDA-Public Use
  Company Number: None

PATIENT
  Age: 64 Year
  Sex: Male
  Weight: 77 kg

DRUGS (12)
  1. PHENYTOIN [Suspect]
     Indication: CONVULSION
     Dosage: 130MG, TID, PO
     Route: 048
     Dates: start: 20081023
  2. DILANTIN [Suspect]
  3. CARVEDILOL [Concomitant]
  4. INSULIN [Concomitant]
  5. FUROSEMIDE [Concomitant]
  6. CLOPIDOGREL [Concomitant]
  7. SITAGLIPTIN [Concomitant]
  8. SIMVASTATIN [Concomitant]
  9. OMEPRAZOLE [Concomitant]
  10. EZETIMIBE [Concomitant]
  11. SODIUM CITRATE [Concomitant]
  12. GLIPIZIDE [Concomitant]

REACTIONS (5)
  - ANTICONVULSANT DRUG LEVEL INCREASED [None]
  - COORDINATION ABNORMAL [None]
  - GAIT DISTURBANCE [None]
  - LETHARGY [None]
  - TREMOR [None]
